FAERS Safety Report 18549999 (Version 3)
Quarter: 2021Q1

REPORT INFORMATION
  Report Type: Spontaneous
  Country: JP (occurrence: JP)
  Receive Date: 20201126
  Receipt Date: 20210311
  Transmission Date: 20210419
  Serious: Yes (Life-Threatening, Other)
  Sender: FDA-Public Use
  Company Number: JP-CHEPLA-C20203514

PATIENT
  Age: 87 Year
  Sex: Female
  Weight: 49.5 kg

DRUGS (10)
  1. DENOSINE FOR I.V.INFUSION 500MG (GANCICLOVIR) [Suspect]
     Active Substance: GANCICLOVIR
     Indication: CYTOMEGALOVIRUS ENTEROCOLITIS
     Dosage: 125 MILLIGRAM, QD
     Route: 041
     Dates: start: 20201102, end: 20201115
  2. DENOSINE FOR I.V.INFUSION 500MG (GANCICLOVIR) [Suspect]
     Active Substance: GANCICLOVIR
     Indication: CYTOMEGALOVIRUS ENTEROCOLITIS
     Dosage: 50 MILLIGRAM, QD
     Route: 041
     Dates: start: 20201009, end: 20201025
  3. DENOSINE FOR I.V.INFUSION 500MG (GANCICLOVIR) [Suspect]
     Active Substance: GANCICLOVIR
     Indication: CYTOMEGALOVIRUS ENTEROCOLITIS
     Dosage: 75 MILLIGRAM, QD
     Route: 041
     Dates: start: 20201026, end: 20201029
  4. BFLUID [Concomitant]
     Active Substance: AMINO ACIDS\DEXTROSE\ELECTROLYTES NOS\VITAMINS
     Route: 065
     Dates: start: 20201002, end: 20201009
  5. DENOSINE FOR I.V.INFUSION 500MG (GANCICLOVIR) [Suspect]
     Active Substance: GANCICLOVIR
     Indication: CYTOMEGALOVIRUS ENTEROCOLITIS
     Dosage: 100 MILLIGRAM, QD
     Route: 041
     Dates: start: 20201030, end: 20201101
  6. MIYA?BM [Concomitant]
     Active Substance: CLOSTRIDIUM BUTYRICUM SPORES STRAIN M-55
     Route: 065
     Dates: start: 20200909
  7. DENOSINE FOR I.V.INFUSION 500MG (GANCICLOVIR) [Suspect]
     Active Substance: GANCICLOVIR
     Indication: CYTOMEGALOVIRUS ENTEROCOLITIS
     Dosage: 125 MILLIGRAM, QD
     Route: 041
     Dates: start: 20200930, end: 20201008
  8. ELIQUIS [Concomitant]
     Active Substance: APIXABAN
     Route: 065
  9. TULOBUTEROL (TULOBUTEROL) CUTANEOUS PATCH [Concomitant]
     Active Substance: TULOBUTEROL
     Route: 065
     Dates: start: 20200904
  10. PRIMPERAN [Concomitant]
     Active Substance: METOCLOPRAMIDE HYDROCHLORIDE
     Route: 065
     Dates: start: 20201002, end: 20201008

REACTIONS (1)
  - Altered state of consciousness [Recovering/Resolving]

NARRATIVE: CASE EVENT DATE: 20201005
